FAERS Safety Report 11966778 (Version 1)
Quarter: 2016Q1

REPORT INFORMATION
  Report Type: Spontaneous
  Country: US (occurrence: US)
  Receive Date: 20160127
  Receipt Date: 20160127
  Transmission Date: 20160526
  Serious: Yes (Hospitalization)
  Sender: FDA-Public Use
  Company Number: US-SA-2016SA012261

PATIENT
  Age: 77 Year
  Sex: Male

DRUGS (15)
  1. FISH OIL [Concomitant]
     Active Substance: FISH OIL
  2. DYNASTAT [Concomitant]
     Active Substance: PARECOXIB SODIUM
  3. TRICOR [Concomitant]
     Active Substance: FENOFIBRATE
  4. ARICEPT [Concomitant]
     Active Substance: DONEPEZIL HYDROCHLORIDE
  5. LOVENOX [Suspect]
     Active Substance: ENOXAPARIN SODIUM
     Dosage: 80 MG/ 0.8ML.
     Route: 030
  6. ZETIA [Concomitant]
     Active Substance: EZETIMIBE
  7. COREG [Concomitant]
     Active Substance: CARVEDILOL
  8. JAKAFI [Suspect]
     Active Substance: RUXOLITINIB
     Indication: MYELOFIBROSIS
     Route: 048
     Dates: start: 20131221
  9. LIPITOR [Concomitant]
     Active Substance: ATORVASTATIN CALCIUM
  10. MICARDIS [Concomitant]
     Active Substance: TELMISARTAN
  11. ARANESP [Concomitant]
     Active Substance: DARBEPOETIN ALFA
  12. NORVASC [Concomitant]
     Active Substance: AMLODIPINE BESYLATE
  13. HYDROXYUREA. [Concomitant]
     Active Substance: HYDROXYUREA
  14. WARFARIN [Concomitant]
     Active Substance: WARFARIN
  15. ALLOPURINOL. [Concomitant]
     Active Substance: ALLOPURINOL

REACTIONS (3)
  - Anaemia [Recovering/Resolving]
  - Muscle haemorrhage [Unknown]
  - Acute kidney injury [Unknown]

NARRATIVE: CASE EVENT DATE: 201501
